FAERS Safety Report 21157236 (Version 2)
Quarter: 2023Q1

REPORT INFORMATION
  Report Type: Spontaneous
  Country: BR (occurrence: BR)
  Receive Date: 20220801
  Receipt Date: 20230127
  Transmission Date: 20230418
  Serious: Yes (Other)
  Sender: FDA-Public Use
  Company Number: BR-ABBOTT-2022A-1351437

PATIENT
  Age: 25 Year
  Sex: Male

DRUGS (2)
  1. DEPAKOTE ER [Suspect]
     Active Substance: DIVALPROEX SODIUM
     Indication: Epilepsy
     Route: 048
     Dates: start: 2021
  2. DEPAKOTE ER [Suspect]
     Active Substance: DIVALPROEX SODIUM
     Indication: Epilepsy
     Dosage: DAILY DOSE 2 TABLET, IN THE MORNING,
     Route: 048

REACTIONS (3)
  - Product use complaint [Unknown]
  - Seizure [Unknown]
  - Weight increased [Unknown]

NARRATIVE: CASE EVENT DATE: 20210101
